FAERS Safety Report 23528057 (Version 1)
Quarter: 2024Q1

REPORT INFORMATION
  Report Type: Spontaneous
  Country: AU (occurrence: AU)
  Receive Date: 20240215
  Receipt Date: 20240215
  Transmission Date: 20240410
  Serious: Yes (Other)
  Sender: FDA-Public Use
  Company Number: AU-MYLANLABS-2024M1015009

PATIENT
  Age: 58 Year
  Sex: Male

DRUGS (1)
  1. LIPITOR [Suspect]
     Active Substance: ATORVASTATIN CALCIUM
     Indication: Product used for unknown indication
     Dosage: UNK
     Route: 065

REACTIONS (9)
  - Ligament rupture [Unknown]
  - Osteoarthritis [Unknown]
  - Sleep disorder [Unknown]
  - Hypersomnia [Unknown]
  - Back injury [Unknown]
  - Accident [Unknown]
  - Meniscus injury [Unknown]
  - Tendon injury [Unknown]
  - Fall [Unknown]
